FAERS Safety Report 16672977 (Version 1)
Quarter: 2019Q3

REPORT INFORMATION
  Report Type: Spontaneous
  Country: CN (occurrence: CN)
  Receive Date: 20190806
  Receipt Date: 20190806
  Transmission Date: 20191004
  Serious: Yes (Life-Threatening)
  Sender: FDA-Public Use
  Company Number: PHHY2019CN181439

PATIENT
  Age: 88 Year
  Sex: Male
  Weight: 75 kg

DRUGS (1)
  1. ACLASTA [Suspect]
     Active Substance: ZOLEDRONIC ACID
     Indication: OSTEOPOROSIS
     Dosage: UNK, ONCE A YEAR
     Route: 042
     Dates: start: 20190731

REACTIONS (6)
  - Cardiac failure [Unknown]
  - Gait inability [Unknown]
  - Feeding disorder [Unknown]
  - Joint stiffness [Unknown]
  - Angina pectoris [Unknown]
  - Mental disorder [Unknown]

NARRATIVE: CASE EVENT DATE: 20190731
